FAERS Safety Report 6913109-5 (Version None)
Quarter: 2010Q3

REPORT INFORMATION
  Report Type: 
  Country: None (occurrence: None)
  Receive Date: 20100806
  Receipt Date: 20090721
  Transmission Date: 20110219
  Serious: No
  Sender: FDA-Public Use
  Company Number: US-PFIZER INC-2009225330

PATIENT
  Sex: Female
  Weight: 59 kg

DRUGS (2)
  1. DETROL LA [Suspect]
     Indication: POLLAKIURIA
     Dates: start: 20090414, end: 20090430
  2. CELEBREX [Concomitant]
     Indication: ARTHRITIS

REACTIONS (3)
  - DECREASED IMMUNE RESPONSIVENESS [None]
  - OEDEMA PERIPHERAL [None]
  - PAIN [None]
